FAERS Safety Report 23250154 (Version 3)
Quarter: 2024Q2

REPORT INFORMATION
  Report Type: Spontaneous
  Country: SE (occurrence: SE)
  Receive Date: 20231201
  Receipt Date: 20240408
  Transmission Date: 20240716
  Serious: Yes (Death, Hospitalization, Other)
  Sender: FDA-Public Use
  Company Number: SE-BRISTOL-MYERS SQUIBB COMPANY-2023-173191

PATIENT
  Age: 79 Year
  Sex: Female

DRUGS (1)
  1. NIVOLUMAB [Suspect]
     Active Substance: NIVOLUMAB
     Indication: Malignant melanoma
     Dosage: FREQ : ONLY ONCE
     Route: 042
     Dates: start: 20230314, end: 20230314

REACTIONS (7)
  - Immune-mediated hepatitis [Recovering/Resolving]
  - Immune-mediated myocarditis [Unknown]
  - Immune-mediated enterocolitis [Unknown]
  - Adrenal insufficiency [Fatal]
  - Cardiac failure acute [Unknown]
  - Enteritis [Unknown]
  - Drug ineffective [Unknown]

NARRATIVE: CASE EVENT DATE: 20230327
